FAERS Safety Report 13505147 (Version 4)
Quarter: 2017Q3

REPORT INFORMATION
  Report Type: Spontaneous
  Country: US (occurrence: US)
  Receive Date: 20170502
  Receipt Date: 20170816
  Transmission Date: 20171127
  Serious: Yes (Other)
  Sender: FDA-Public Use
  Company Number: US-AMGEN-USASL2017041268

PATIENT
  Age: 70 Year
  Sex: Male
  Weight: 105.7 kg

DRUGS (11)
  1. REPATHA [Suspect]
     Active Substance: EVOLOCUMAB
     Indication: BLOOD CHOLESTEROL INCREASED
  2. VITAMIN D3 [Concomitant]
     Active Substance: CHOLECALCIFEROL
  3. REPATHA [Suspect]
     Active Substance: EVOLOCUMAB
     Indication: HYPERCHOLESTEROLAEMIA
     Dosage: 140 MG/ML, Q2WK
     Route: 065
     Dates: start: 20170314
  4. REPATHA [Suspect]
     Active Substance: EVOLOCUMAB
     Indication: LOW DENSITY LIPOPROTEIN INCREASED
     Dosage: 140 MG, Q2WK
     Route: 030
     Dates: end: 20170411
  5. COLCHICINE. [Concomitant]
     Active Substance: COLCHICINE
     Indication: GOUT
  6. VITAMIN B12 [Concomitant]
     Active Substance: CYANOCOBALAMIN
  7. SCHIFF MOVE FREE [Concomitant]
     Active Substance: CHONDROITIN SULFATE A\GLUCOSAMINE
  8. MULTI VITAMIN [Concomitant]
     Active Substance: VITAMINS
  9. ASPIRIN. [Concomitant]
     Active Substance: ASPIRIN
     Indication: GOUT
  10. REPATHA [Suspect]
     Active Substance: EVOLOCUMAB
     Indication: HYPERLIPIDAEMIA
     Dosage: UNK
     Route: 065
  11. COQ10 [Concomitant]
     Active Substance: UBIDECARENONE

REACTIONS (16)
  - Precancerous skin lesion [Recovered/Resolved]
  - Weight increased [Recovering/Resolving]
  - Drug ineffective [Unknown]
  - Gastrointestinal disorder [Unknown]
  - Peripheral swelling [Unknown]
  - Rash [Recovered/Resolved]
  - Diarrhoea [Not Recovered/Not Resolved]
  - Adverse drug reaction [Unknown]
  - Injection site pain [Unknown]
  - Abdominal discomfort [Unknown]
  - Constipation [Not Recovered/Not Resolved]
  - Skin ulcer [Recovered/Resolved]
  - Pain in extremity [Unknown]
  - Fall [Unknown]
  - Contusion [Unknown]
  - Erythema [Unknown]

NARRATIVE: CASE EVENT DATE: 2017
